FAERS Safety Report 11984955 (Version 2)
Quarter: 2016Q1

REPORT INFORMATION
  Report Type: Report from Study
  Country: FR (occurrence: FR)
  Receive Date: 20160201
  Receipt Date: 20160302
  Transmission Date: 20160526
  Serious: Yes (Death, Hospitalization, Other)
  Sender: FDA-Public Use
  Company Number: FR-BRISTOL-MYERS SQUIBB COMPANY-BMS-2016-006146

PATIENT
  Age: 69 Year
  Sex: Male
  Weight: 81 kg

DRUGS (2)
  1. AVLOCARDYL                         /00030001/ [Concomitant]
     Active Substance: PROPRANOLOL HYDROCHLORIDE
     Indication: HYPERTENSION
     Dosage: 160 MG, QD
     Route: 065
     Dates: start: 20151105
  2. ENTECAVIR. [Suspect]
     Active Substance: ENTECAVIR
     Indication: HEPATITIS B
     Dosage: 0.5 MG, QD
     Route: 065
     Dates: start: 20110321

REACTIONS (7)
  - Encephalopathy [Unknown]
  - Metastases to peritoneum [Unknown]
  - General physical condition abnormal [Unknown]
  - Colostomy [Unknown]
  - Metabolic acidosis [Unknown]
  - Prostate cancer [Unknown]
  - Large intestinal obstruction [Fatal]

NARRATIVE: CASE EVENT DATE: 20160116
